FAERS Safety Report 23237643 (Version 2)
Quarter: 2024Q3

REPORT INFORMATION
  Report Type: Spontaneous
  Country: FR (occurrence: FR)
  Receive Date: 20231128
  Receipt Date: 20240819
  Transmission Date: 20241017
  Serious: Yes (Hospitalization, Other)
  Sender: AUROBINDO
  Company Number: FR-UCBSA-2023028279

PATIENT
  Age: 69 Year
  Sex: Male

DRUGS (9)
  1. LACOSAMIDE [Suspect]
     Active Substance: LACOSAMIDE
     Indication: Partial seizures
     Dosage: UNK
     Route: 065
  2. LACOSAMIDE [Suspect]
     Active Substance: LACOSAMIDE
     Indication: Epilepsy
  3. LACOSAMIDE [Suspect]
     Active Substance: LACOSAMIDE
     Indication: Dysarthria
  4. LAMOTRIGINE [Suspect]
     Active Substance: LAMOTRIGINE
     Indication: Simple partial seizures
     Route: 065
  5. LAMOTRIGINE [Suspect]
     Active Substance: LAMOTRIGINE
     Indication: Epilepsy
  6. LAMOTRIGINE [Suspect]
     Active Substance: LAMOTRIGINE
     Indication: Dysarthria
  7. LEVETIRACETAM [Suspect]
     Active Substance: LEVETIRACETAM
     Indication: Partial seizures
     Dosage: UNK
     Route: 065
  8. LEVETIRACETAM [Suspect]
     Active Substance: LEVETIRACETAM
     Indication: Epilepsy
  9. LEVETIRACETAM [Suspect]
     Active Substance: LEVETIRACETAM
     Indication: Dysarthria

REACTIONS (9)
  - Asthenia [Recovered/Resolved]
  - Conjunctivitis [Unknown]
  - Ectropion [Unknown]
  - Rash [Recovered/Resolved]
  - Stevens-Johnson syndrome [Recovered/Resolved]
  - Stomatitis necrotising [Unknown]
  - Stomatitis haemorrhagic [Unknown]
  - Toxic epidermal necrolysis [Recovered/Resolved]
  - Urticaria [Recovered/Resolved]
